FAERS Safety Report 15147809 (Version 1)
Quarter: 2018Q3

REPORT INFORMATION
  Report Type: Spontaneous
  Country: AU (occurrence: AU)
  Receive Date: 20180716
  Receipt Date: 20180716
  Transmission Date: 20181010
  Serious: Yes (Other)
  Sender: FDA-Public Use
  Company Number: AU-ACCORD-069441

PATIENT
  Age: 44 Year
  Sex: Male

DRUGS (3)
  1. AZATHIOPRINE. [Interacting]
     Active Substance: AZATHIOPRINE
     Indication: CROHN^S DISEASE
     Dosage: LONG?TERM
  2. CLOZAPINE. [Suspect]
     Active Substance: CLOZAPINE
     Indication: SCHIZOPHRENIA
     Dosage: TITRATED UP TO 300 MG, LATER TITRATED UP TO 400 MG PER DAY
     Dates: start: 201701
  3. RISPERIDONE. [Concomitant]
     Active Substance: RISPERIDONE
     Indication: SCHIZOPHRENIA
     Dosage: DEPOT RISPERIDONE 50 MG IM FORTNIGHTLY

REACTIONS (3)
  - Lymphocyte count decreased [Unknown]
  - Drug interaction [Unknown]
  - White blood cell count decreased [Unknown]

NARRATIVE: CASE EVENT DATE: 201804
